FAERS Safety Report 5900048-1 (Version None)
Quarter: 2008Q3

REPORT INFORMATION
  Report Type: 
  Country: None (occurrence: None)
  Receive Date: 20080926
  Receipt Date: 20080923
  Transmission Date: 20090109
  Serious: Yes (Hospitalization, Other)
  Sender: FDA-Public Use
  Company Number: US-RB-004310-08

PATIENT

DRUGS (2)
  1. BUPRENORPHINE SOLUTION (BUPRENEX) [Suspect]
     Dosage: RECEIVED 4 UP-TITRATIONS (SPECIFIC DOSES UNKNOWN)
     Route: 060
  2. BUPRENORPHINE SOLUTION (BUPRENEX) [Suspect]
     Route: 060

REACTIONS (2)
  - CONVULSION [None]
  - SUBDURAL HAEMORRHAGE [None]
